FAERS Safety Report 10089403 (Version 2)
Quarter: 2014Q3

REPORT INFORMATION
  Report Type: Spontaneous
  Country: AU (occurrence: None)
  Receive Date: 20140417
  Receipt Date: 20140722
  Transmission Date: 20150326
  Serious: Yes (Hospitalization, Other)
  Sender: FDA-Public Use
  Company Number: AUR-APL-2014-04648

PATIENT
  Age: 47 Year
  Sex: Male

DRUGS (2)
  1. AURO-QUETIAPINE 200 [Suspect]
     Active Substance: QUETIAPINE
     Indication: PRODUCT USED FOR UNKNOWN INDICATION
  2. CLOZARIL [Suspect]
     Active Substance: CLOZAPINE
     Indication: PRODUCT USED FOR UNKNOWN INDICATION
     Dosage: (550 MG,1 D)
     Route: 048
     Dates: start: 19940716

REACTIONS (3)
  - Schizophrenia [None]
  - Mental disorder [None]
  - Agitation [None]

NARRATIVE: CASE EVENT DATE: 20120531
